FAERS Safety Report 9225497 (Version 1)
Quarter: 2013Q2

REPORT INFORMATION
  Report Type: Report from Study
  Country: ES (occurrence: ES)
  Receive Date: 20130411
  Receipt Date: 20130411
  Transmission Date: 20140414
  Serious: Yes (Death)
  Sender: FDA-Public Use
  Company Number: ES-ROCHE-1209696

PATIENT
  Sex: 0

DRUGS (1)
  1. TENECTEPLASE [Suspect]
     Indication: ACUTE MYOCARDIAL INFARCTION
     Dosage: SINGLE BOLUS OF 30MG IN PATIENTS {60KG UP TO OF 50 MG FOR PATIENTS }/=90KG
     Route: 042

REACTIONS (1)
  - Death [Fatal]
